FAERS Safety Report 14020815 (Version 3)
Quarter: 2017Q4

REPORT INFORMATION
  Report Type: Spontaneous
  Country: NL (occurrence: NL)
  Receive Date: 20170928
  Receipt Date: 20171221
  Transmission Date: 20180321
  Serious: Yes (Disabling, Other)
  Sender: FDA-Public Use
  Company Number: PHHY2017NL140621

PATIENT
  Sex: Female

DRUGS (2)
  1. LEVOFLOXACIN SANDOZ [Suspect]
     Active Substance: LEVOFLOXACIN
     Indication: PNEUMONIA
     Dosage: 2 DF (DAILY)
     Route: 048
     Dates: start: 20170109, end: 20170112
  2. LEVOFLOXACIN SANDOZ [Suspect]
     Active Substance: LEVOFLOXACIN
     Indication: INFLUENZA

REACTIONS (6)
  - Pain [Unknown]
  - Tendonitis [Recovering/Resolving]
  - Seasonal allergy [Unknown]
  - Tongue discomfort [Unknown]
  - Hypersensitivity [Unknown]
  - Periarthritis [Recovering/Resolving]

NARRATIVE: CASE EVENT DATE: 20170114
